FAERS Safety Report 19789023 (Version 2)
Quarter: 2021Q4

REPORT INFORMATION
  Report Type: Spontaneous
  Country: BR (occurrence: BR)
  Receive Date: 20210904
  Receipt Date: 20211021
  Transmission Date: 20220304
  Serious: Yes (Hospitalization, Other)
  Sender: FDA-Public Use
  Company Number: NVSC2021BR200090

PATIENT
  Age: 89 Year
  Sex: Female

DRUGS (8)
  1. DIOVAN [Suspect]
     Active Substance: VALSARTAN
     Indication: Hypertension
     Dosage: 2 DF, QD ((IN THE MORNING AND AFTERNOON)
     Route: 065
  2. DIOVAN [Suspect]
     Active Substance: VALSARTAN
     Dosage: 1 DF, BID, 01 TABLET OF 65 MG
     Route: 048
  3. FLUOXETINE HYDROCHLORIDE [Concomitant]
     Active Substance: FLUOXETINE HYDROCHLORIDE
     Indication: Depression
     Dosage: 25 MG
     Route: 065
  4. FLUOXETINE HYDROCHLORIDE [Concomitant]
     Active Substance: FLUOXETINE HYDROCHLORIDE
     Dosage: 50 MG
     Route: 065
  5. FLUOXETINE HYDROCHLORIDE [Concomitant]
     Active Substance: FLUOXETINE HYDROCHLORIDE
     Dosage: 1 DF, QD
     Route: 048
  6. METFORMIN [Concomitant]
     Active Substance: METFORMIN HYDROCHLORIDE
     Indication: Type 2 diabetes mellitus
     Dosage: 1 DF, QD, 01 TABLET OF 850 MG
     Route: 048
  7. ALPRAZOLAM [Concomitant]
     Active Substance: ALPRAZOLAM
     Indication: Nerve injury
     Dosage: 1 MG, TID
     Route: 065
  8. ALPRAZOLAM [Concomitant]
     Active Substance: ALPRAZOLAM
     Dosage: 1 DF, TID, 01 TABLET OF 01 MG
     Route: 048

REACTIONS (4)
  - Dementia Alzheimer^s type [Not Recovered/Not Resolved]
  - Drug dependence [Unknown]
  - Aggression [Not Recovered/Not Resolved]
  - Nervousness [Recovering/Resolving]
